FAERS Safety Report 6686286-1 (Version None)
Quarter: 2010Q2

REPORT INFORMATION
  Report Type: 
  Country: None (occurrence: None)
  Receive Date: 20100414
  Receipt Date: 20100331
  Transmission Date: 20101027
  Serious: Yes (Hospitalization)
  Sender: FDA-Public Use
  Company Number: DSU-2010-01375

PATIENT
  Age: 66 Year
  Sex: Female

DRUGS (5)
  1. OLMESARTAN MEDOXOMIL AND HYDROCHLOROTHIZIDE [Suspect]
     Indication: HYPERTENSION
     Dosage: 40/?? MG (QD), PER ORAL
     Route: 048
  2. NORVASC [Suspect]
     Indication: HYPERTENSION
     Dosage: (QD), PER ORAL
     Route: 048
  3. DIOVAN [Suspect]
     Indication: HYPERTENSION
     Dosage: (QD)
  4. INSULIN HUMAN (INSULIN HUMAN) (INSULIN HUMAN) [Concomitant]
  5. INSULIN REGULAR (INSULIN) (INSULIN) [Concomitant]

REACTIONS (5)
  - BLOOD PRESSURE INCREASED [None]
  - GENERALISED OEDEMA [None]
  - POISONING [None]
  - PULMONARY OEDEMA [None]
  - REBOUND EFFECT [None]
